FAERS Safety Report 9257585 (Version 1)
Quarter: 2013Q2

REPORT INFORMATION
  Report Type: Spontaneous
  Country: GB (occurrence: None)
  Receive Date: 20130422
  Receipt Date: 20130422
  Transmission Date: 20140414
  Serious: No
  Sender: FDA-Public Use
  Company Number: GER/UKI/13/0029071

PATIENT
  Age: 68 Year
  Sex: Male
  Weight: 82.55 kg

DRUGS (7)
  1. ATORVASTATIN [Suspect]
     Indication: BLOOD CHOLESTEROL INCREASED
     Dosage: 10 MG, 1 IN 1 D, ORAL
     Route: 048
     Dates: start: 201209, end: 20121115
  2. ARTHROTEC (ARTHROTEC) [Concomitant]
  3. CO-CODAMOL (PANADEINE CO) [Concomitant]
  4. DOSULEPIN (DOSULEPIN HYDROCHLORIDE) [Concomitant]
  5. HYDROCORTISONE (HYDROCORTISONE SODIUM SUCCINATE) [Concomitant]
  6. THYROXINE (LEVOTHYROXINE SODIUM) [Concomitant]
  7. TOSTRAN (TESTOSTERONE) [Concomitant]

REACTIONS (4)
  - Joint lock [None]
  - Arthralgia [None]
  - Muscle atrophy [None]
  - Musculoskeletal pain [None]
